FAERS Safety Report 10273360 (Version 1)
Quarter: 2014Q2

REPORT INFORMATION
  Report Type: Spontaneous
  Country: US (occurrence: None)
  Receive Date: 20140630
  Receipt Date: 20140630
  Transmission Date: 20141212
  Serious: Yes (Hospitalization)
  Sender: FDA-Public Use
  Company Number: 2014SA081806

PATIENT
  Sex: Female

DRUGS (1)
  1. ICY HOT [Suspect]
     Indication: PRODUCT USED FOR UNKNOWN INDICATION

REACTIONS (1)
  - Burns second degree [None]
